FAERS Safety Report 5723748-5 (Version None)
Quarter: 2008Q2

REPORT INFORMATION
  Report Type: 
  Country: None (occurrence: None)
  Receive Date: 20080429
  Receipt Date: 20080429
  Transmission Date: 20081010
  Serious: Yes (Death)
  Sender: FDA-Public Use
  Company Number: None

PATIENT
  Sex: Male
  Weight: 91 kg

DRUGS (21)
  1. TEMOZOLOMIDE [Suspect]
     Indication: ACUTE MYELOID LEUKAEMIA
     Dosage: 100MG/M2 (200MG) QD PO
     Route: 048
     Dates: start: 20080402, end: 20080415
  2. TEMOZOLOMIDE [Suspect]
     Indication: ACUTE MYELOID LEUKAEMIA
     Dosage: 200MG/M2 (400MG) QD PO
     Route: 048
     Dates: start: 20080416, end: 20080422
  3. MIDAZOLAM HCL [Concomitant]
  4. FENTANYL-100 [Concomitant]
  5. EPINEPHRINE [Concomitant]
  6. D50W [Concomitant]
  7. REGULAR INSULIN [Concomitant]
  8. LASIX [Concomitant]
  9. NOREPINEPHRINE [Concomitant]
  10. VASOPRESSIN (PITRESSIN) [Concomitant]
  11. ACETAMINOPHEN [Concomitant]
  12. VANCOMYCIN [Concomitant]
  13. POLYSTYRENE SODIUM (KAYEXALATE) [Concomitant]
  14. SODIUM BICARBONATE [Concomitant]
  15. PNEUMOCOCCAL VACCINE (PNEUMOVAX 23) [Concomitant]
  16. LEVAQUIN [Concomitant]
  17. NEUPOGEN [Concomitant]
  18. INFLUENZA VIRUS VACCINE (FLUARIX) [Concomitant]
  19. HEPARIN [Concomitant]
  20. MAXIPIME [Concomitant]
  21. CANCIDAS [Concomitant]

REACTIONS (13)
  - CARDIOVASCULAR DISORDER [None]
  - DYSPNOEA [None]
  - FUNGAL INFECTION [None]
  - HYPOTENSION [None]
  - HYPOXIA [None]
  - MENTAL STATUS CHANGES [None]
  - ODYNOPHAGIA [None]
  - OESOPHAGEAL INFECTION [None]
  - PHARYNGOLARYNGEAL PAIN [None]
  - PRODUCTIVE COUGH [None]
  - RESPIRATORY DISORDER [None]
  - TACHYCARDIA [None]
  - TACHYPNOEA [None]
